FAERS Safety Report 15627579 (Version 1)
Quarter: 2018Q4

REPORT INFORMATION
  Report Type: Report from Study
  Country: US (occurrence: US)
  Receive Date: 20181116
  Receipt Date: 20181116
  Transmission Date: 20190205
  Serious: Yes (Other)
  Sender: FDA-Public Use
  Company Number: US-JNJFOC-20181113059

PATIENT
  Sex: Female

DRUGS (1)
  1. TREMFYA [Suspect]
     Active Substance: GUSELKUMAB
     Indication: PSORIASIS
     Route: 058
     Dates: start: 20181029

REACTIONS (6)
  - Pruritus [Unknown]
  - Psoriasis [Unknown]
  - Precancerous cells present [Unknown]
  - Dermatitis [Unknown]
  - Haemorrhage [Unknown]
  - Poor quality sleep [Recovered/Resolved]
